FAERS Safety Report 8574374-4 (Version None)
Quarter: 2012Q3

REPORT INFORMATION
  Report Type: 
  Country: None (occurrence: None)
  Receive Date: 20120806
  Receipt Date: 20120803
  Transmission Date: 20120928
  Serious: Yes (Life-Threatening, Hospitalization, Other)
  Sender: FDA-Public Use
  Company Number: AU-B.I. PHARMACEUTICALS,INC./RIDGEFIELD-2012-AU-00840AU

PATIENT
  Sex: Male
  Weight: 86 kg

DRUGS (7)
  1. SERETIDE [Concomitant]
  2. LIPITOR [Concomitant]
  3. PRADAXA [Suspect]
     Indication: CEREBROVASCULAR ACCIDENT PROPHYLAXIS
     Dosage: 300 MG
     Dates: start: 20110912, end: 20120420
  4. NEXIUM [Concomitant]
  5. SPIRIVA [Concomitant]
  6. VENTOLIN [Concomitant]
  7. MICARDIS [Concomitant]

REACTIONS (1)
  - EMBOLIC STROKE [None]
